FAERS Safety Report 9448048 (Version 1)
Quarter: 2013Q3

REPORT INFORMATION
  Report Type: Spontaneous
  Country: US (occurrence: None)
  Receive Date: 20130807
  Receipt Date: 20130807
  Transmission Date: 20140515
  Serious: Yes (Other)
  Sender: FDA-Public Use
  Company Number: None

PATIENT
  Age: 56 Year
  Sex: Female
  Weight: 55 kg

DRUGS (2)
  1. PROPOFOL [Suspect]
     Indication: INDUCTION OF ANAESTHESIA
     Dosage: PROPOFOL 10MG/ML
     Route: 042
     Dates: start: 20130308
  2. PROPOFOL [Suspect]
     Dates: start: 20130507

REACTIONS (2)
  - Retching [None]
  - Vomiting [None]
